FAERS Safety Report 5159638-9 (Version None)
Quarter: 2006Q4

REPORT INFORMATION
  Report Type: 
  Country: None (occurrence: None)
  Receive Date: 20061120
  Receipt Date: 20061106
  Transmission Date: 20070319
  Serious: Yes (Hospitalization, Other)
  Sender: FDA-Public Use
  Company Number: 2006SP005898

PATIENT
  Age: 42 Year
  Sex: Male
  Weight: 86.637 kg

DRUGS (2)
  1. PEG-INTRON [Suspect]
     Indication: HEPATITIS C
     Dosage: SC
     Route: 058
     Dates: start: 20060811
  2. RIBASPHERE [Suspect]
     Indication: HEPATITIS C
     Dosage: PO
     Route: 048
     Dates: start: 20060811

REACTIONS (18)
  - ABDOMINAL DISTENSION [None]
  - ANAEMIA [None]
  - BLOOD POTASSIUM INCREASED [None]
  - CONDITION AGGRAVATED [None]
  - COUGH [None]
  - DRUG INEFFECTIVE [None]
  - HYPERTENSION [None]
  - LIVER DISORDER [None]
  - LOCAL SWELLING [None]
  - MEMORY IMPAIRMENT [None]
  - ORAL INTAKE REDUCED [None]
  - PENILE HAEMORRHAGE [None]
  - POLLAKIURIA [None]
  - RENAL DISORDER [None]
  - SWELLING FACE [None]
  - URINARY INCONTINENCE [None]
  - URINARY RETENTION [None]
  - WEIGHT INCREASED [None]
